FAERS Safety Report 26148822 (Version 1)
Quarter: 2025Q4

REPORT INFORMATION
  Report Type: Spontaneous
  Country: IR (occurrence: IR)
  Receive Date: 20251212
  Receipt Date: 20251212
  Transmission Date: 20260117
  Serious: Yes (Disabling, Other)
  Sender: MICRO LABS LIMITED
  Company Number: IR-MICRO LABS LIMITED-ML2025-06513

PATIENT
  Age: 41 Year
  Sex: Female

DRUGS (2)
  1. CLINDAMYCIN [Suspect]
     Active Substance: CLINDAMYCIN
     Indication: Eye infection toxoplasmal
     Dosage: 1?MG/0.1?ML INTRAVITREAL
  2. DEXAMETHASONE [Concomitant]
     Active Substance: DEXAMETHASONE
     Indication: Eye infection toxoplasmal
     Dosage: 0.4?MG/0.1?ML INTRAVITREAL

REACTIONS (4)
  - Retinal infarction [Not Recovered/Not Resolved]
  - Blindness [Not Recovered/Not Resolved]
  - Macular degeneration [Not Recovered/Not Resolved]
  - Retinal toxicity [Not Recovered/Not Resolved]
